FAERS Safety Report 9145345 (Version 5)
Quarter: 2013Q2

REPORT INFORMATION
  Report Type: Spontaneous
  Country: US (occurrence: US)
  Receive Date: 20130307
  Receipt Date: 20130610
  Transmission Date: 20140414
  Serious: No
  Sender: FDA-Public Use
  Company Number: US-009507513-1303USA002085

PATIENT
  Sex: Female
  Weight: 71.66 kg

DRUGS (1)
  1. IMPLANON [Suspect]
     Indication: CONTRACEPTION
     Dosage: 1 DF, UNK
     Route: 059
     Dates: start: 20110322

REACTIONS (4)
  - Metrorrhagia [Not Recovered/Not Resolved]
  - Device dislocation [Unknown]
  - Medical device complication [Unknown]
  - Device difficult to use [Unknown]
